FAERS Safety Report 8833616 (Version 2)
Quarter: 2012Q4

REPORT INFORMATION
  Report Type: 
  Country: FR (occurrence: FR)
  Receive Date: 20121010
  Receipt Date: 20121022
  Transmission Date: 20130627
  Serious: Yes (Other)
  Sender: FDA-Public Use
  Company Number: FR-EISAI INC-E7389-03069-SPO-FR

PATIENT
  Age: 71 Year
  Sex: Female

DRUGS (2)
  1. HALAVEN [Suspect]
     Dosage: UNKNOWN
     Route: 041
     Dates: start: 201209, end: 201209
  2. HALAVEN [Suspect]
     Route: 041
     Dates: start: 20121002

REACTIONS (2)
  - Gamma-glutamyltransferase increased [Recovering/Resolving]
  - Blood alkaline phosphatase increased [Recovering/Resolving]
